FAERS Safety Report 4480604-0 (Version None)
Quarter: 2004Q4

REPORT INFORMATION
  Report Type: 
  Country: None (occurrence: None)
  Receive Date: 20041019
  Receipt Date: 20041013
  Transmission Date: 20050328
  Serious: No
  Sender: FDA-Public Use
  Company Number: A044-002-005255

PATIENT
  Age: 84 Year
  Sex: Female

DRUGS (2)
  1. ARICEPT [Suspect]
     Dosage: ORAL
     Route: 048
  2. ISOPTIN [Suspect]

REACTIONS (2)
  - ATRIOVENTRICULAR BLOCK [None]
  - DRUG INTERACTION [None]
